FAERS Safety Report 6626334-8 (Version None)
Quarter: 2010Q1

REPORT INFORMATION
  Report Type: 
  Country: None (occurrence: None)
  Receive Date: 20100310
  Receipt Date: 20100303
  Transmission Date: 20100710
  Serious: Yes (Other)
  Sender: FDA-Public Use
  Company Number: CHPA2010GB04569

PATIENT
  Age: 66 Year
  Sex: Male
  Weight: 82.55 kg

DRUGS (2)
  1. RESYL (NCH) [Suspect]
     Indication: COUGH
     Dosage: 10 ML, TID
     Route: 048
     Dates: start: 20100210, end: 20100210
  2. NIROLEX [Concomitant]
     Indication: COUGH
     Dosage: UNK,UNK
     Route: 048

REACTIONS (3)
  - ABDOMINAL PAIN LOWER [None]
  - NAUSEA [None]
  - VOMITING [None]
